FAERS Safety Report 7294835-8 (Version None)
Quarter: 2011Q1

REPORT INFORMATION
  Report Type: 
  Country: None (occurrence: None)
  Receive Date: 20110216
  Receipt Date: 20040211
  Transmission Date: 20110831
  Serious: Yes (Other)
  Sender: FDA-Public Use
  Company Number: US-JNJFOC-20100902550

PATIENT
  Sex: Female
  Weight: 61.24 kg

DRUGS (1)
  1. PROPULSID [Suspect]
     Indication: DYSPEPSIA
     Route: 048

REACTIONS (5)
  - TACHYCARDIA [None]
  - ANXIETY [None]
  - VENTRICULAR EXTRASYSTOLES [None]
  - LOSS OF CONSCIOUSNESS [None]
  - DEPRESSION [None]
